FAERS Safety Report 20696528 (Version 1)
Quarter: 2022Q2

REPORT INFORMATION
  Report Type: Report from Study
  Country: US (occurrence: US)
  Receive Date: 20220411
  Receipt Date: 20220411
  Transmission Date: 20220720
  Serious: No
  Sender: FDA-Public Use
  Company Number: US-TRAVERE-2022TVT00058

PATIENT
  Age: 27 Year
  Sex: Female

DRUGS (2)
  1. CHOLBAM [Suspect]
     Active Substance: CHOLIC ACID
     Indication: Biliary tract disorder
     Route: 048
     Dates: start: 20150529
  2. CHOLBAM [Suspect]
     Active Substance: CHOLIC ACID
     Indication: Vitamin D deficiency

REACTIONS (1)
  - Pregnancy [Unknown]
